FAERS Safety Report 7388522-5 (Version None)
Quarter: 2011Q2

REPORT INFORMATION
  Report Type: 
  Country: None (occurrence: None)
  Receive Date: 20110401
  Receipt Date: 20110318
  Transmission Date: 20111010
  Serious: Yes (Hospitalization)
  Sender: FDA-Public Use
  Company Number: US-JNJFOC-20100304297

PATIENT
  Sex: Female
  Weight: 75.3 kg

DRUGS (11)
  1. PREDNISONE [Concomitant]
  2. ESTRACE [Concomitant]
     Route: 067
  3. CELLCEPT [Concomitant]
     Route: 048
  4. ALENDRONATE [Concomitant]
  5. KEFLEX [Concomitant]
  6. INFLIXIMAB [Suspect]
     Route: 042
  7. OMEPRAZOLE [Concomitant]
  8. LIPITOR [Concomitant]
  9. INFLIXIMAB [Suspect]
     Indication: PSORIASIS
     Route: 042
  10. MACROBID [Suspect]
     Indication: URINARY TRACT INFECTION
  11. DITROPAN [Concomitant]

REACTIONS (5)
  - NAUSEA [None]
  - PYREXIA [None]
  - FATIGUE [None]
  - VOMITING [None]
  - HYPOVOLAEMIC SHOCK [None]
